FAERS Safety Report 6042816-4 (Version None)
Quarter: 2009Q1

REPORT INFORMATION
  Report Type: 
  Country: None (occurrence: None)
  Receive Date: 20090119
  Receipt Date: 20081219
  Transmission Date: 20090719
  Serious: No
  Sender: FDA-Public Use
  Company Number: US-BAYER-US-2007-013040

PATIENT
  Age: 17 Year
  Sex: Female
  Weight: 47 kg

DRUGS (1)
  1. YAZ [Suspect]
     Indication: ORAL CONTRACEPTION
     Route: 048
     Dates: start: 20070101

REACTIONS (4)
  - ABNORMAL WITHDRAWAL BLEEDING [None]
  - GENITAL HAEMORRHAGE [None]
  - METRORRHAGIA [None]
  - NO ADVERSE EVENT [None]
